FAERS Safety Report 24086335 (Version 2)
Quarter: 2024Q3

REPORT INFORMATION
  Report Type: Spontaneous
  Country: RU (occurrence: RU)
  Receive Date: 20240712
  Receipt Date: 20240724
  Transmission Date: 20241017
  Serious: Yes (Other)
  Sender: NOVARTIS
  Company Number: RU-002147023-NVSC2024RU143453

PATIENT
  Sex: Female

DRUGS (5)
  1. IMATINIB [Suspect]
     Active Substance: IMATINIB
     Indication: Chronic myeloid leukaemia
     Dosage: 400 MG, QD
     Route: 065
     Dates: start: 2005
  2. IMATINIB [Suspect]
     Active Substance: IMATINIB
     Dosage: 800 MG, QD
     Route: 065
  3. NILOTINIB [Suspect]
     Active Substance: NILOTINIB
     Indication: Chronic myeloid leukaemia
     Dosage: 400 MG, QD
     Route: 065
     Dates: start: 201306
  4. NILOTINIB [Suspect]
     Active Substance: NILOTINIB
     Dosage: 800 MG, QD
     Route: 065
  5. DASATINIB [Suspect]
     Active Substance: DASATINIB
     Indication: Chronic myeloid leukaemia
     Dosage: UNK, QD (50 TO 100 MG)
     Route: 065
     Dates: start: 201609

REACTIONS (11)
  - Cytopenia [Unknown]
  - Gastrointestinal disorder [Unknown]
  - Pericardial effusion [Unknown]
  - Pancytopenia [Unknown]
  - Oedema [Unknown]
  - Rash [Unknown]
  - Remission not achieved [Unknown]
  - Therapeutic response shortened [Unknown]
  - Haemorrhagic disorder [Unknown]
  - Platelet count decreased [Unknown]
  - Therapy non-responder [Unknown]
